FAERS Safety Report 10544567 (Version 14)
Quarter: 2015Q2

REPORT INFORMATION
  Report Type: Spontaneous
  Country: US (occurrence: US)
  Receive Date: 20141027
  Receipt Date: 20150413
  Transmission Date: 20150821
  Serious: Yes (Hospitalization, Other)
  Sender: FDA-Public Use
  Company Number: US-GLAXOSMITHKLINE-A1085359A

PATIENT

DRUGS (1)
  1. TYKERB [Suspect]
     Active Substance: LAPATINIB DITOSYLATE
     Indication: BREAST CANCER FEMALE
     Dosage: 1000 MG DAILY FOR 21 DAYS
     Route: 065
     Dates: start: 20100814

REACTIONS (17)
  - Epistaxis [Unknown]
  - Acne [Unknown]
  - Swelling face [Unknown]
  - Skin discolouration [Unknown]
  - Rash [Not Recovered/Not Resolved]
  - Scab [Unknown]
  - Headache [Unknown]
  - Weight increased [Not Recovered/Not Resolved]
  - Listless [Unknown]
  - Mobility decreased [Unknown]
  - Transient ischaemic attack [Unknown]
  - Skin exfoliation [Unknown]
  - Rhinorrhoea [Unknown]
  - Pain in extremity [Unknown]
  - Adverse drug reaction [Unknown]
  - Dizziness [Unknown]
  - Gait disturbance [Unknown]

NARRATIVE: CASE EVENT DATE: 201412
